FAERS Safety Report 5760310-2 (Version None)
Quarter: 2008Q2

REPORT INFORMATION
  Report Type: 
  Country: None (occurrence: None)
  Receive Date: 20080605
  Receipt Date: 20080527
  Transmission Date: 20081010
  Serious: Yes (Other)
  Sender: FDA-Public Use
  Company Number: US-PFIZER INC-2006090698

PATIENT
  Sex: Female
  Weight: 54.4 kg

DRUGS (2)
  1. CELEBREX [Suspect]
  2. BEXTRA [Suspect]

REACTIONS (2)
  - ANGINA UNSTABLE [None]
  - CEREBROVASCULAR ACCIDENT [None]
